FAERS Safety Report 19490920 (Version 3)
Quarter: 2021Q4

REPORT INFORMATION
  Report Type: Other
  Country: US (occurrence: US)
  Receive Date: 20210705
  Receipt Date: 20211123
  Transmission Date: 20220303
  Serious: Yes (Other)
  Sender: FDA-Public Use
  Company Number: US-INTERCEPT-PM2021002093

PATIENT
  Sex: Female
  Weight: 51.701 kg

DRUGS (9)
  1. OCALIVA [Suspect]
     Active Substance: OBETICHOLIC ACID
     Indication: Primary biliary cholangitis
     Dosage: 5 MILLIGRAM, QD
     Route: 048
     Dates: start: 20210221, end: 2021
  2. OCALIVA [Suspect]
     Active Substance: OBETICHOLIC ACID
     Dosage: 5 MILLIGRAM, QW
     Route: 048
     Dates: start: 2021, end: 2021
  3. OCALIVA [Suspect]
     Active Substance: OBETICHOLIC ACID
     Dosage: 5 MILLIGRAM, QD
     Route: 048
     Dates: start: 2021, end: 2021
  4. URSODIOL [Concomitant]
     Active Substance: URSODIOL
     Dosage: 250 MILLIGRAM, BID
     Route: 048
  5. BUSPIRONE HCL [Concomitant]
     Active Substance: BUSPIRONE HYDROCHLORIDE
  6. CALCIUM [Concomitant]
     Active Substance: CALCIUM
  7. VITAMINS NOS [Concomitant]
     Active Substance: VITAMINS
     Route: 048
  8. LISINOPRIL [Concomitant]
     Active Substance: LISINOPRIL
  9. LATANOPROST [Concomitant]
     Active Substance: LATANOPROST

REACTIONS (4)
  - Bladder cancer [Not Recovered/Not Resolved]
  - Cancer surgery [Unknown]
  - Memory impairment [Unknown]
  - Confusional state [Unknown]

NARRATIVE: CASE EVENT DATE: 20210101
